FAERS Safety Report 25319201 (Version 1)
Quarter: 2025Q2

REPORT INFORMATION
  Report Type: Report from Study
  Country: US (occurrence: US)
  Receive Date: 20250515
  Receipt Date: 20250515
  Transmission Date: 20250717
  Serious: Yes (Life-Threatening, Hospitalization)
  Sender: NOVARTIS
  Company Number: US-002147023-NVSC2025US076196

PATIENT
  Age: 54 Year
  Sex: Male
  Weight: 72.4 kg

DRUGS (28)
  1. LAMPRENE [Suspect]
     Active Substance: CLOFAZIMINE
     Indication: Mycobacterium avium complex infection
     Dosage: 100 MG, QD (TAKE WITH FOOD)
     Route: 048
     Dates: start: 20230824
  2. LAMPRENE [Suspect]
     Active Substance: CLOFAZIMINE
     Indication: Atypical mycobacterial infection
     Dosage: 100 MG, QD
     Route: 048
     Dates: start: 20240824, end: 20250316
  3. LAMPRENE [Suspect]
     Active Substance: CLOFAZIMINE
     Dosage: 100 MG, QD (TAKE WITH FOOD)
     Route: 048
     Dates: start: 20250317
  4. LAMPRENE [Suspect]
     Active Substance: CLOFAZIMINE
     Dosage: 100 MG, QD (TAKE WITH FOOD)
     Route: 048
     Dates: start: 20250318
  5. ACETYLCYSTEINE [Concomitant]
     Active Substance: ACETYLCYSTEINE
     Indication: Product used for unknown indication
     Dosage: 2 ML, BID (2 ML NEBULIZER 2 TIMES DAILY, TAKE 2 ML USING NEBULIZER IF NEEDED)
     Route: 065
  6. AMOXICILLIN\CLAVULANATE POTASSIUM [Concomitant]
     Active Substance: AMOXICILLIN\CLAVULANATE POTASSIUM
     Indication: Product used for unknown indication
     Dosage: 875-125 MG 1 TABLET ORAL 2 TIMES DAILY
     Route: 048
  7. ASPIRIN [Concomitant]
     Active Substance: ASPIRIN
     Indication: Knee operation
     Dosage: 81 MG, BID
     Route: 048
  8. VITAMIN B COMPLEX [Concomitant]
     Active Substance: CYANOCOBALAMIN\DEXPANTHENOL\NIACINAMIDE\PYRIDOXINE HYDROCHLORIDE\RIBOFLAVIN 5^-PHOSPHATE SODIUM\THIA
     Indication: Product used for unknown indication
     Dosage: 1 DOSAGE FORM, QD (1 TABLET ORAL DAILY)
     Route: 048
  9. BUDESONIDE [Concomitant]
     Active Substance: BUDESONIDE
     Indication: Product used for unknown indication
     Route: 065
  10. CHOLECALCIFEROL [Concomitant]
     Active Substance: CHOLECALCIFEROL
     Indication: Product used for unknown indication
     Dosage: 5000 UNITS (3 TIMES WEEKLY (MWF))
     Route: 048
  11. CLARITHROMYCIN [Concomitant]
     Active Substance: CLARITHROMYCIN
     Indication: Mycobacterium avium complex infection
     Dosage: 500 MG, Q12H
     Route: 048
     Dates: start: 202212, end: 20250316
  12. CLARITHROMYCIN [Concomitant]
     Active Substance: CLARITHROMYCIN
     Dosage: 500 MG, BID (EVERY DAY)
     Route: 048
  13. ETHAMBUTOL HYDROCHLORIDE [Concomitant]
     Active Substance: ETHAMBUTOL HYDROCHLORIDE
     Indication: Mycobacterium avium complex infection
     Dosage: 1200 MG, Q24H
     Route: 048
     Dates: start: 20220831, end: 20250316
  14. ETHAMBUTOL HYDROCHLORIDE [Concomitant]
     Active Substance: ETHAMBUTOL HYDROCHLORIDE
     Dosage: UNK, Q3W
     Route: 048
  15. FLUTICASONE PROPIONATE [Concomitant]
     Active Substance: FLUTICASONE PROPIONATE
     Indication: Product used for unknown indication
     Dosage: 50 MCG/ACT 1 SPRAY BOTH NOSTRILS DAILY
     Route: 045
  16. KRILL OIL [Concomitant]
     Active Substance: DIETARY SUPPLEMENT\KRILL OIL
     Indication: Product used for unknown indication
     Dosage: 1 DOSAGE FORM, QD (1 CAPSULE)
     Route: 048
  17. LORATADINE [Concomitant]
     Active Substance: LORATADINE
     Indication: Product used for unknown indication
     Dosage: 10 MG, QD
     Route: 048
  18. MAGNESIUM [Concomitant]
     Active Substance: MAGNESIUM
     Indication: Product used for unknown indication
     Dosage: 400 MG, QD
     Route: 048
  19. MELATONIN [Concomitant]
     Active Substance: MELATONIN
     Indication: Product used for unknown indication
     Route: 065
  20. MOMETASONE FUROATE [Concomitant]
     Active Substance: MOMETASONE FUROATE
     Indication: Product used for unknown indication
     Dosage: 200 UG, BID
     Route: 055
  21. OXYCODONE AND ACETAMINOPHEN [Concomitant]
     Active Substance: ACETAMINOPHEN\OXYCODONE HYDROCHLORIDE
     Indication: Product used for unknown indication
     Route: 048
  22. OXYMETAZOLINE HYDROCHLORIDE [Concomitant]
     Active Substance: OXYMETAZOLINE HYDROCHLORIDE
     Indication: Product used for unknown indication
     Route: 045
  23. SODIUM CHLORIDE [Concomitant]
     Active Substance: SODIUM CHLORIDE
     Indication: Dyspnoea
     Dosage: 4 ML (TAKE 4 ML USING NEBULIZER 2 TIMES A DAY. MAY ALSO TAKE 4 ML EVERY 6 HOURS AS NEEDED (SHORTNESS
     Route: 065
  24. SODIUM CHLORIDE [Concomitant]
     Active Substance: SODIUM CHLORIDE
     Indication: Cough
  25. SUMATRIPTAN SUCCINATE [Concomitant]
     Active Substance: SUMATRIPTAN SUCCINATE
     Indication: Product used for unknown indication
     Route: 048
  26. VITAMIN E [Concomitant]
     Active Substance: .ALPHA.-TOCOPHEROL
     Indication: Product used for unknown indication
     Dosage: 400 UNITS, QD
     Route: 048
  27. AZITHROMYCIN [Concomitant]
     Active Substance: AZITHROMYCIN
     Indication: Atypical mycobacterial infection
     Dosage: 500 MG, TIW
     Route: 048
  28. ALBUTEROL [Concomitant]
     Active Substance: ALBUTEROL
     Indication: Wheezing
     Route: 065

REACTIONS (9)
  - Pulmonary embolism [Recovering/Resolving]
  - Haemoptysis [Not Recovered/Not Resolved]
  - Pleuritic pain [Unknown]
  - Joint swelling [Unknown]
  - Tenderness [Unknown]
  - Contusion [Unknown]
  - Hypoaesthesia [Unknown]
  - Muscle spasms [Recovering/Resolving]
  - Arthralgia [Unknown]

NARRATIVE: CASE EVENT DATE: 20250311
